FAERS Safety Report 15282266 (Version 2)
Quarter: 2018Q3

REPORT INFORMATION
  Report Type: Spontaneous
  Country: IL (occurrence: IL)
  Receive Date: 20180815
  Receipt Date: 20180826
  Transmission Date: 20181010
  Serious: Yes (Other)
  Sender: FDA-Public Use
  Company Number: IL-BAXTER-2018BAX021426

PATIENT
  Age: 52 Year
  Sex: Female

DRUGS (7)
  1. NACL 0.9% INTRAVENOUS SOLUTION BP [Suspect]
     Active Substance: SODIUM CHLORIDE
     Indication: MEDICATION DILUTION
     Dosage: NACL 0.9% 100ML VIAFLO
     Route: 042
     Dates: start: 20180729, end: 20180729
  2. NACL 0.9% INTRAVENOUS SOLUTION BP [Suspect]
     Active Substance: SODIUM CHLORIDE
     Dosage: VIAFLO SODIUM CHLORIDE 0.9% INJ 500ML
     Route: 042
     Dates: start: 20180730, end: 20180730
  3. MABTHERA [Suspect]
     Active Substance: RITUXIMAB
     Dosage: SOLUTION, 100MG/10ML, 10ML
     Route: 042
     Dates: start: 20180730, end: 20180730
  4. PHENERGAN [Suspect]
     Active Substance: PROMETHAZINE HYDROCHLORIDE
     Indication: PREMEDICATION
     Route: 065
     Dates: start: 20180730
  5. MABTHERA [Suspect]
     Active Substance: RITUXIMAB
     Indication: LYMPHOMA
     Dosage: SOLUTION, 100MG/10ML, 10ML
     Route: 042
     Dates: start: 20180729, end: 20180729
  6. HYDROCORTISONE. [Suspect]
     Active Substance: HYDROCORTISONE
     Indication: PREMEDICATION
     Route: 065
     Dates: start: 20180730
  7. ACAMOL [Suspect]
     Active Substance: ACETAMINOPHEN
     Indication: PREMEDICATION
     Route: 065
     Dates: start: 20180730

REACTIONS (9)
  - Blood pressure increased [Unknown]
  - Throat irritation [Unknown]
  - Erythema [Unknown]
  - Paraesthesia [Unknown]
  - Oedema peripheral [Unknown]
  - Hypersensitivity [Unknown]
  - Headache [Unknown]
  - Cough [Unknown]
  - Arthralgia [Unknown]

NARRATIVE: CASE EVENT DATE: 20180729
